FAERS Safety Report 22214838 (Version 1)
Quarter: 2023Q2

REPORT INFORMATION
  Report Type: Spontaneous
  Country: CN (occurrence: CN)
  Receive Date: 20230415
  Receipt Date: 20230415
  Transmission Date: 20230721
  Serious: Yes (Hospitalization)
  Sender: FDA-Public Use
  Company Number: CN-002147023-NVSC2023CN084474

PATIENT
  Age: 81 Year
  Sex: Female

DRUGS (2)
  1. SACUBITRIL\VALSARTAN [Suspect]
     Active Substance: SACUBITRIL\VALSARTAN
     Indication: Cardiac failure
     Dosage: 25 MG, BID
     Route: 048
     Dates: start: 20230308, end: 20230327
  2. SPIRONOLACTONE [Concomitant]
     Active Substance: SPIRONOLACTONE
     Indication: Cardiac failure
     Dosage: 20 MG, QD
     Route: 048
     Dates: start: 20230308, end: 20230327

REACTIONS (2)
  - Blood potassium increased [Recovering/Resolving]
  - Prescribed underdose [Unknown]

NARRATIVE: CASE EVENT DATE: 20230308
